FAERS Safety Report 4534725-4 (Version None)
Quarter: 2004Q4

REPORT INFORMATION
  Report Type: 
  Country: None (occurrence: None)
  Receive Date: 20041222
  Receipt Date: 20031215
  Transmission Date: 20050328
  Serious: No
  Sender: FDA-Public Use
  Company Number: US-BRISTOL-MYERS SQUIBB COMPANY-12458808

PATIENT
  Age: 59 Year
  Sex: Female
  Weight: 109 kg

DRUGS (4)
  1. PRAVACHOL [Suspect]
     Indication: BLOOD CHOLESTEROL INCREASED
     Route: 048
  2. ACCUPRIL [Concomitant]
  3. ASPIRIN [Concomitant]
  4. ACTOS [Concomitant]

REACTIONS (1)
  - ALOPECIA [None]
